FAERS Safety Report 8203163-5 (Version None)
Quarter: 2012Q1

REPORT INFORMATION
  Report Type: 
  Country: None (occurrence: None)
  Receive Date: 20120312
  Receipt Date: 20120301
  Transmission Date: 20120608
  Serious: Yes (Hospitalization)
  Sender: FDA-Public Use
  Company Number: CHPA2008US24338

PATIENT
  Age: 58 Year
  Sex: Female
  Weight: 63.492 kg

DRUGS (7)
  1. EXCEDRIN EXTRA STRENGTH TABLETS [Suspect]
     Indication: BACK PAIN
     Dosage: 2 DF, TID
     Route: 048
     Dates: end: 20120117
  2. OXYCODONE HCL [Suspect]
     Dosage: UNK
     Dates: start: 20110101, end: 20110101
  3. OXYCONTIN [Suspect]
     Dosage: UNK
     Dates: start: 20110101, end: 20110101
  4. EXCEDRIN EXTRA STRENGTH TABLETS [Suspect]
     Indication: ARTHRALGIA
     Dosage: 2 DF, TID
     Route: 048
     Dates: start: 20081101, end: 20081101
  5. DRUG THERAPY NOS [Suspect]
     Dosage: UNK
     Dates: start: 20110101, end: 20110101
  6. VICODIN [Suspect]
     Dosage: UNK
     Dates: start: 20110101, end: 20110101
  7. PERCOCET [Suspect]
     Dosage: UNK
     Dates: start: 20110101, end: 20110101

REACTIONS (5)
  - NAUSEA [None]
  - DYSPEPSIA [None]
  - CORONARY ARTERY OCCLUSION [None]
  - CONSTIPATION [None]
  - INCORRECT DRUG ADMINISTRATION DURATION [None]
